FAERS Safety Report 10013402 (Version 1)
Quarter: 2014Q1

REPORT INFORMATION
  Report Type: Spontaneous
  Country: ES (occurrence: ES)
  Receive Date: 20140314
  Receipt Date: 20140314
  Transmission Date: 20141002
  Serious: Yes (Hospitalization)
  Sender: FDA-Public Use
  Company Number: ALCN2014ES001596

PATIENT
  Age: 8 Month
  Sex: Male
  Weight: 8 kg

DRUGS (1)
  1. LOPIMAX [Suspect]
     Indication: PUPILS UNEQUAL
     Dosage: 2 GTT, ONCE/SINGLE
     Route: 047
     Dates: start: 20140225

REACTIONS (3)
  - Hypoperfusion [Unknown]
  - Slow response to stimuli [Recovering/Resolving]
  - Hypothermia [Unknown]
